FAERS Safety Report 8094765 (Version 11)
Quarter: 2014Q2

REPORT INFORMATION
  Report Type: Report from Study
  Country: CA (occurrence: CA)
  Receive Date: 20110817
  Receipt Date: 20140418
  Transmission Date: 20141212
  Serious: Yes (Hospitalization, Other)
  Sender: FDA-Public Use
  Company Number: PHHY2011CA71948

PATIENT
  Age: 49 Year
  Sex: Female

DRUGS (6)
  1. SANDOSTATIN LAR [Suspect]
     Indication: ACROMEGALY
     Dosage: 30 MG, QMO
     Route: 030
     Dates: start: 19970826, end: 201208
  2. SANDOSTATIN LAR [Suspect]
     Dosage: 30 MG EVERY 4 WEEKS
     Route: 030
  3. SANDOSTATIN LAR [Suspect]
     Dosage: 30 MG, QMO
     Route: 030
  4. METFORMIN [Concomitant]
     Dosage: UNK UKN, UNK
     Dates: start: 2001
  5. BROMOCRIPTINE [Concomitant]
     Dosage: UNK UKN, UNK
     Dates: start: 2001
  6. GLYBURIDE [Concomitant]
     Dosage: UNK UKN, UNK
     Dates: start: 2008

REACTIONS (15)
  - Dyspnoea [Unknown]
  - Abdominal hernia [Unknown]
  - Iron deficiency anaemia [Recovered/Resolved]
  - Blood iron decreased [Recovered/Resolved]
  - Uterine leiomyoma [Recovered/Resolved]
  - Menorrhagia [Recovered/Resolved]
  - Takayasu^s arteritis [Recovered/Resolved]
  - Atrial fibrillation [Recovered/Resolved]
  - Muscle spasms [Unknown]
  - Back pain [Unknown]
  - Blood cholesterol increased [Unknown]
  - Constipation [Unknown]
  - Abdominal pain [Recovering/Resolving]
  - Abdominal distension [Unknown]
  - Abdominal discomfort [Unknown]
